FAERS Safety Report 6774053-X (Version None)
Quarter: 2010Q2

REPORT INFORMATION
  Report Type: 
  Country: None (occurrence: None)
  Receive Date: 20100616
  Receipt Date: 20100616
  Transmission Date: 20101027
  Serious: Yes (Other)
  Sender: FDA-Public Use
  Company Number: None

PATIENT
  Age: 27 Year
  Sex: Male
  Weight: 63.5036 kg

DRUGS (1)
  1. OXYMETAZOLINE HCL [Suspect]
     Indication: MULTIPLE ALLERGIES
     Dosage: 2-3 SPRAYS TWICE A DAY NASAL
     Route: 045

REACTIONS (3)
  - INAPPROPRIATE SCHEDULE OF DRUG ADMINISTRATION [None]
  - PRODUCT LABEL ISSUE [None]
  - REBOUND EFFECT [None]
